FAERS Safety Report 16168244 (Version 1)
Quarter: 2019Q2

REPORT INFORMATION
  Report Type: Spontaneous
  Country: GR (occurrence: GR)
  Receive Date: 20190408
  Receipt Date: 20190408
  Transmission Date: 20190711
  Serious: Yes (Death)
  Sender: FDA-Public Use
  Company Number: PHHY2019GR079322

PATIENT

DRUGS (1)
  1. EVEROLIMUS. [Suspect]
     Active Substance: EVEROLIMUS
     Indication: GASTROINTESTINAL STROMAL TUMOUR
     Route: 065

REACTIONS (2)
  - Fournier^s gangrene [Fatal]
  - Product use in unapproved indication [Unknown]
